FAERS Safety Report 19112178 (Version 2)
Quarter: 2021Q4

REPORT INFORMATION
  Report Type: Spontaneous
  Country: JP (occurrence: JP)
  Receive Date: 20210408
  Receipt Date: 20211213
  Transmission Date: 20220303
  Serious: Yes (Hospitalization)
  Sender: FDA-Public Use
  Company Number: JP-BAYER-2021-118558

PATIENT
  Age: 75 Year
  Sex: Female
  Weight: 47 kg

DRUGS (7)
  1. STIVARGA [Suspect]
     Active Substance: REGORAFENIB
     Indication: Colorectal cancer recurrent
     Dosage: 3 DF PER DAY, 3 CONSECUTIVE WEEKS ADMINISTRATION 1 WEEK WITHDRAWAL
     Dates: start: 20190329, end: 20190516
  2. STIVARGA [Suspect]
     Active Substance: REGORAFENIB
     Indication: Colorectal cancer recurrent
     Dosage: 2 DF PER DAY, 3 CONSECUTIVE WEEKS ADMINISTRATION 1 WEEK WITHDRAWAL
     Dates: start: 20190704
  3. URSODIOL [Concomitant]
     Active Substance: URSODIOL
     Dosage: DAILY DOSE 600 MG
     Route: 048
     Dates: start: 20190530
  4. FUROSEMIDE [Concomitant]
     Active Substance: FUROSEMIDE
     Dosage: DAILY DOSE 20 MG
     Route: 048
     Dates: start: 20200427
  5. SPIRONOLACTONE [Concomitant]
     Active Substance: SPIRONOLACTONE
     Dosage: DAILY DOSE 25 MG
     Route: 048
     Dates: start: 20200427
  6. CARVEDILOL [Concomitant]
     Active Substance: CARVEDILOL
     Dosage: DAILY DOSE 10 MG
     Route: 048
     Dates: start: 20200508
  7. MAGNESIUM OXIDE [Concomitant]
     Active Substance: MAGNESIUM OXIDE
     Dosage: DAILY DOSE 1500 MG
     Route: 048
     Dates: start: 20160824

REACTIONS (3)
  - Cerebral infarction [Recovering/Resolving]
  - Embolism [Recovering/Resolving]
  - Muscular weakness [Recovering/Resolving]

NARRATIVE: CASE EVENT DATE: 20210404
